FAERS Safety Report 4997419-7 (Version None)
Quarter: 2006Q2

REPORT INFORMATION
  Report Type: 
  Country: None (occurrence: None)
  Receive Date: 20060509
  Receipt Date: 20050603
  Transmission Date: 20061013
  Serious: Yes (Hospitalization, Other)
  Sender: FDA-Public Use
  Company Number: US-MERCK-0506USA00985

PATIENT
  Age: 54 Year
  Sex: Male
  Weight: 109 kg

DRUGS (2)
  1. VIOXX [Suspect]
     Route: 048
     Dates: end: 20030801
  2. PEPCID [Suspect]
     Route: 065

REACTIONS (59)
  - ACUTE RESPIRATORY DISTRESS SYNDROME [None]
  - ANAL FISTULA [None]
  - AORTIC VALVE INCOMPETENCE [None]
  - ASTHMA [None]
  - ATRIAL FIBRILLATION [None]
  - AZOTAEMIA [None]
  - BLOOD POTASSIUM DECREASED [None]
  - BRONCHITIS [None]
  - CARDIAC DISORDER [None]
  - CEREBROVASCULAR ACCIDENT [None]
  - CHOLECYSTITIS [None]
  - CHOLELITHIASIS [None]
  - CHRONIC OBSTRUCTIVE PULMONARY DISEASE [None]
  - CONDITION AGGRAVATED [None]
  - CONFUSIONAL STATE [None]
  - CYANOSIS [None]
  - DEPRESSED LEVEL OF CONSCIOUSNESS [None]
  - DEPRESSION [None]
  - DIABETES MELLITUS [None]
  - DIZZINESS POSTURAL [None]
  - DRUG WITHDRAWAL SYNDROME [None]
  - DYSPHAGIA [None]
  - DYSPNOEA [None]
  - ELECTROLYTE IMBALANCE [None]
  - FALL [None]
  - FOAMING AT MOUTH [None]
  - GRAND MAL CONVULSION [None]
  - HAEMOGLOBIN DECREASED [None]
  - HEMIPARESIS [None]
  - HYPERTENSION [None]
  - HYPERTENSIVE HEART DISEASE [None]
  - HYPOAESTHESIA [None]
  - HYPOTENSION [None]
  - HYPOXIA [None]
  - LABYRINTHITIS [None]
  - LOSS OF CONSCIOUSNESS [None]
  - MITRAL VALVE INCOMPETENCE [None]
  - MYOCARDIAL INFARCTION [None]
  - PANCREATITIS [None]
  - PERIRECTAL ABSCESS [None]
  - PHARYNGOLARYNGEAL PAIN [None]
  - PLATELET COUNT DECREASED [None]
  - PNEUMONIA [None]
  - PNEUMONIA ASPIRATION [None]
  - PRODUCTIVE COUGH [None]
  - PYREXIA [None]
  - RESPIRATORY FAILURE [None]
  - SENSATION OF FOREIGN BODY [None]
  - SINUS DISORDER [None]
  - SINUSITIS [None]
  - SPUTUM DISCOLOURED [None]
  - SYNCOPE [None]
  - TREMOR [None]
  - TRICUSPID VALVE INCOMPETENCE [None]
  - UNDERSENSING [None]
  - UNRESPONSIVE TO VERBAL STIMULI [None]
  - VERTIGO [None]
  - VOMITING [None]
  - WHITE BLOOD CELL COUNT INCREASED [None]
